FAERS Safety Report 9420031 (Version 3)
Quarter: 2013Q4

REPORT INFORMATION
  Report Type: Spontaneous
  Country: FR (occurrence: FR)
  Receive Date: 20130725
  Receipt Date: 20131009
  Transmission Date: 20140711
  Serious: Yes (Hospitalization, Other)
  Sender: FDA-Public Use
  Company Number: FR-ACTELION-A-CH2013-86178

PATIENT
  Age: 3 Year
  Sex: Female
  Weight: 17 kg

DRUGS (7)
  1. TRACLEER [Suspect]
     Indication: PULMONARY ARTERIAL HYPERTENSION
     Dosage: 32 MG, BID
     Route: 048
  2. ROCEPHINE [Concomitant]
     Indication: PRODUCT USED FOR UNKNOWN INDICATION
  3. CIFLOX [Concomitant]
     Indication: PRODUCT USED FOR UNKNOWN INDICATION
  4. VENTOLINE [Concomitant]
     Indication: PRODUCT USED FOR UNKNOWN INDICATION
  5. ATROVENT [Concomitant]
     Indication: PRODUCT USED FOR UNKNOWN INDICATION
  6. JOSACINE [Concomitant]
     Indication: PRODUCT USED FOR UNKNOWN INDICATION
  7. PULMICORT [Concomitant]
     Indication: PRODUCT USED FOR UNKNOWN INDICATION

REACTIONS (2)
  - Mycoplasma infection [Recovered/Resolved]
  - Acute respiratory failure [Recovered/Resolved]
